FAERS Safety Report 6698237-4 (Version None)
Quarter: 2010Q2

REPORT INFORMATION
  Report Type: 
  Country: None (occurrence: None)
  Receive Date: 20100427
  Receipt Date: 20100421
  Transmission Date: 20101027
  Serious: Yes (Other)
  Sender: FDA-Public Use
  Company Number: US-BRISTOL-MYERS SQUIBB COMPANY-15075021

PATIENT
  Sex: Female

DRUGS (2)
  1. COUMADIN [Suspect]
  2. PEPCID AC [Suspect]
     Indication: DYSPEPSIA
     Route: 048
     Dates: start: 20100401

REACTIONS (1)
  - ATRIAL FIBRILLATION [None]
